FAERS Safety Report 5084796-4 (Version None)
Quarter: 2006Q3

REPORT INFORMATION
  Report Type: 
  Country: None (occurrence: None)
  Receive Date: 20060815
  Receipt Date: 20060801
  Transmission Date: 20061208
  Serious: Yes (Hospitalization)
  Sender: FDA-Public Use
  Company Number: JP200608000519

PATIENT
  Age: 75 Year
  Sex: Female

DRUGS (4)
  1. HUMULIN R [Suspect]
     Indication: DIABETES MELLITUS NON-INSULIN-DEPENDENT
     Dates: start: 20060719
  2. HUMULIN N [Suspect]
     Indication: DIABETES MELLITUS NON-INSULIN-DEPENDENT
     Dates: start: 20060719
  3. HUMALOG [Suspect]
     Indication: DIABETES MELLITUS NON-INSULIN-DEPENDENT
     Dates: start: 20060101
  4. ANTIBIOTICS [Concomitant]

REACTIONS (4)
  - EOSINOPHIL COUNT INCREASED [None]
  - POLYMYALGIA RHEUMATICA [None]
  - PYREXIA [None]
  - URINARY TRACT DISORDER [None]
